FAERS Safety Report 7688027-8 (Version None)
Quarter: 2011Q3

REPORT INFORMATION
  Report Type: 
  Country: None (occurrence: None)
  Receive Date: 20110816
  Receipt Date: 20110816
  Transmission Date: 20111222
  Serious: Yes (Hospitalization)
  Sender: FDA-Public Use
  Company Number: None

PATIENT
  Age: 67 Year
  Sex: Male
  Weight: 145 kg

DRUGS (2)
  1. TERAZOSIN HCL [Suspect]
     Indication: BENIGN PROSTATIC HYPERPLASIA
     Dosage: 2 MG EVERY DAY PO
     Route: 048
     Dates: start: 20101025, end: 20101107
  2. TERAZOSIN HCL [Suspect]
     Indication: HYPERTENSION
     Dosage: 2 MG EVERY DAY PO
     Route: 048
     Dates: start: 20101025, end: 20101107

REACTIONS (2)
  - DIZZINESS [None]
  - HYPOTENSION [None]
